FAERS Safety Report 11509263 (Version 1)
Quarter: 2015Q3

REPORT INFORMATION
  Report Type: Spontaneous
  Country: US (occurrence: US)
  Receive Date: 20150915
  Receipt Date: 20150915
  Transmission Date: 20151125
  Serious: No
  Sender: FDA-Public Use
  Company Number: US-TEVA-591449USA

PATIENT
  Age: 34 Year
  Sex: Female

DRUGS (1)
  1. COPAXONE [Suspect]
     Active Substance: GLATIRAMER ACETATE
     Indication: MULTIPLE SCLEROSIS
     Dates: start: 20150804

REACTIONS (4)
  - Injection site bruising [Unknown]
  - Drug dose omission [Unknown]
  - Injection site pain [Unknown]
  - Alopecia [Unknown]

NARRATIVE: CASE EVENT DATE: 201508
